FAERS Safety Report 7794926-9 (Version None)
Quarter: 2011Q3

REPORT INFORMATION
  Report Type: 
  Country: None (occurrence: None)
  Receive Date: 20110929
  Receipt Date: 20110919
  Transmission Date: 20111222
  Serious: Yes (Hospitalization)
  Sender: FDA-Public Use
  Company Number: WAES 1104FRA00135

PATIENT
  Age: 38 Year
  Sex: Male

DRUGS (3)
  1. RITONAVIR [Suspect]
     Indication: HIV INFECTION
     Dosage: 100 MG/DAILY/PO
     Route: 048
     Dates: start: 20110411
  2. DARUNAVIR ETHANOLATE [Suspect]
     Indication: HIV INFECTION
     Dosage: 400 MG/BID/PO
     Route: 048
     Dates: start: 20110411
  3. ISENTRESS [Suspect]
     Indication: HIV INFECTION
     Dosage: 400 MG/BID /PO
     Route: 048
     Dates: start: 20110411

REACTIONS (2)
  - PNEUMOCYSTIS JIROVECI INFECTION [None]
  - BRONCHIAL HAEMORRHAGE [None]
